FAERS Safety Report 23738162 (Version 1)
Quarter: 2024Q2

REPORT INFORMATION
  Report Type: Spontaneous
  Country: FR (occurrence: FR)
  Receive Date: 20240412
  Receipt Date: 20240412
  Transmission Date: 20240716
  Serious: Yes (Hospitalization)
  Sender: FDA-Public Use
  Company Number: None

PATIENT
  Age: 77 Year
  Sex: Male
  Weight: 77 kg

DRUGS (2)
  1. ISOPHANE INSULIN HUMAN SUSPENSION [Suspect]
     Active Substance: ISOPHANE INSULIN HUMAN SUSPENSION
     Dosage: UNK (DOSE REDUCED)
     Route: 058
     Dates: end: 2006
  2. ISOPHANE INSULIN HUMAN SUSPENSION [Suspect]
     Active Substance: ISOPHANE INSULIN HUMAN SUSPENSION
     Indication: Type 2 diabetes mellitus
     Dosage: UNK
     Route: 058
     Dates: start: 1999

REACTIONS (1)
  - Scleroedema [Not Recovered/Not Resolved]

NARRATIVE: CASE EVENT DATE: 20060401
